FAERS Safety Report 13026648 (Version 7)
Quarter: 2019Q2

REPORT INFORMATION
  Report Type: Spontaneous
  Country: US (occurrence: US)
  Receive Date: 20161214
  Receipt Date: 20190613
  Transmission Date: 20190711
  Serious: No
  Sender: FDA-Public Use
  Company Number: US-PFIZER INC-2016564362

PATIENT
  Age: 7 Year
  Sex: Male
  Weight: 22 kg

DRUGS (6)
  1. GENOTROPIN MQ [Suspect]
     Active Substance: SOMATROPIN
     Indication: HYPOPITUITARISM
     Dosage: 0.8 MG, DAILY
     Route: 058
     Dates: start: 201306
  2. GENOTROPIN MQ [Suspect]
     Active Substance: SOMATROPIN
     Dosage: 0.8 MG, ALTERNATE DAY (ALTERNATE WITH 0.8 MG UNDER THE SKIN, 0.9MG DAILY)
  3. GENOTROPIN MQ [Suspect]
     Active Substance: SOMATROPIN
     Indication: GROWTH FAILURE
     Dosage: 0.8 MG, DAILY
     Route: 058
     Dates: start: 201605
  4. PROAIR HFA [Concomitant]
     Active Substance: ALBUTEROL SULFATE
     Dosage: 90 UG, UNK
  5. GENOTROPIN MQ [Suspect]
     Active Substance: SOMATROPIN
     Dosage: 0.9 MG, ALTERNATE DAY (ALTERNATE WITH 0.8 MG UNDER THE SKIN, 0.9MG DAILY)
  6. CLARITIN [Concomitant]
     Active Substance: LORATADINE
     Dosage: 10 MG, UNK

REACTIONS (4)
  - Fatigue [Unknown]
  - Milk allergy [Unknown]
  - Growing pains [Unknown]
  - Snoring [Unknown]
